FAERS Safety Report 18039941 (Version 1)
Quarter: 2020Q3

REPORT INFORMATION
  Report Type: Report from Study
  Country: US (occurrence: US)
  Receive Date: 20200717
  Receipt Date: 20200717
  Transmission Date: 20201103
  Serious: Yes (Hospitalization)
  Sender: FDA-Public Use
  Company Number: US-JNJFOC-20200716198

PATIENT
  Age: 22 Year
  Sex: Female
  Weight: 56.3 kg

DRUGS (2)
  1. INFLIXIMAB, RECOMBINANT [Suspect]
     Active Substance: INFLIXIMAB
     Indication: INFLAMMATORY BOWEL DISEASE
     Route: 042
     Dates: start: 20140904, end: 20150619
  2. HUMIRA [Concomitant]
     Active Substance: ADALIMUMAB
     Dates: start: 20150730

REACTIONS (2)
  - Urinary tract infection [Recovered/Resolved]
  - Vulvovaginal mycotic infection [Recovered/Resolved]

NARRATIVE: CASE EVENT DATE: 20200601
